FAERS Safety Report 11101160 (Version 1)
Quarter: 2015Q2

REPORT INFORMATION
  Report Type: Spontaneous
  Country: US (occurrence: US)
  Receive Date: 20150508
  Receipt Date: 20150508
  Transmission Date: 20150821
  Serious: No
  Sender: FDA-Public Use
  Company Number: US-PFIZER INC-2015154091

PATIENT
  Age: 60 Year
  Sex: Female
  Weight: 82 kg

DRUGS (2)
  1. CELEBREX [Suspect]
     Active Substance: CELECOXIB
     Indication: FIBROMYALGIA
     Dosage: UNK
  2. CELEBREX [Suspect]
     Active Substance: CELECOXIB
     Indication: ARTHRITIS

REACTIONS (2)
  - Stress [Unknown]
  - Drug effect incomplete [Unknown]
